FAERS Safety Report 6319473-2 (Version None)
Quarter: 2009Q3

REPORT INFORMATION
  Report Type: 
  Country: None (occurrence: None)
  Receive Date: 20090822
  Receipt Date: 20080909
  Transmission Date: 20100115
  Serious: No
  Sender: FDA-Public Use
  Company Number: US-ABBOTT-08P-163-0475233-00

PATIENT
  Sex: Male
  Weight: 94.886 kg

DRUGS (3)
  1. NIASPAN [Suspect]
     Indication: BLOOD CHOLESTEROL
     Dosage: AT NIGHT
     Route: 048
     Dates: start: 20080821, end: 20080908
  2. GALENIC /BISOPROLOL/HYDROCHLOROTHIAZIDE/ [Concomitant]
     Indication: BLOOD DISORDER
     Dosage: 2.5/6.25 MG DAILY
     Route: 048
  3. QUINAPRIL [Concomitant]
     Indication: BLOOD PRESSURE
     Route: 048

REACTIONS (2)
  - FLUSHING [None]
  - RASH [None]
